FAERS Safety Report 16361498 (Version 5)
Quarter: 2019Q4

REPORT INFORMATION
  Report Type: Spontaneous
  Country: US (occurrence: US)
  Receive Date: 20190528
  Receipt Date: 20191107
  Transmission Date: 20200122
  Serious: No
  Sender: FDA-Public Use
  Company Number: US-PFIZER INC-2019180508

PATIENT
  Age: 64 Year
  Sex: Female

DRUGS (2)
  1. LYRICA [Suspect]
     Active Substance: PREGABALIN
     Indication: DIABETES MELLITUS
     Dosage: 600 MG, 1X/DAY (TAKE 3 CAPSULES BY MOUTH AT BEDTIME, 600 MG TOTAL)
     Route: 048
     Dates: start: 20190524
  2. LYRICA [Suspect]
     Active Substance: PREGABALIN
     Indication: NERVE INJURY
     Dosage: 600 MG, 1X/DAY (TAKE 3 CAPSULES BY MOUTH AT BEDTIME, 600 MG TOTAL)
     Route: 048
     Dates: start: 20190426, end: 2019

REACTIONS (3)
  - Off label use [Unknown]
  - Product use issue [Unknown]
  - Pain in extremity [Unknown]

NARRATIVE: CASE EVENT DATE: 2019
